FAERS Safety Report 16268745 (Version 1)
Quarter: 2019Q2

REPORT INFORMATION
  Report Type: Spontaneous
  Country: US (occurrence: US)
  Receive Date: 20190329
  Receipt Date: 20190329
  Transmission Date: 20190711
  Serious: No
  Sender: FDA-Public Use
  Company Number: None

PATIENT
  Age: 59 Year
  Sex: Female

DRUGS (1)
  1. MYCOPHENOLATE [Suspect]
     Active Substance: MYCOPHENOLIC ACID
     Indication: DERMATITIS
     Route: 048
     Dates: start: 20181025

REACTIONS (5)
  - Weight decreased [None]
  - Pyrexia [None]
  - Sleep disorder [None]
  - Chills [None]
  - Dizziness [None]

NARRATIVE: CASE EVENT DATE: 20190201
